FAERS Safety Report 9071341 (Version 1)
Quarter: 2013Q1

REPORT INFORMATION
  Report Type: Spontaneous
  Country: None (occurrence: US)
  Receive Date: 20130206
  Receipt Date: 20130206
  Transmission Date: 20140127
  Serious: No
  Sender: FDA-Public Use
  Company Number: US-ALLERGAN-1210452US

PATIENT
  Age: 80 Year
  Sex: Female

DRUGS (4)
  1. RESTASIS? [Suspect]
     Indication: DRY EYE
     Dosage: 2 GTT, BID
     Route: 047
     Dates: start: 20120710
  2. LUMIGAN [Concomitant]
     Indication: GLAUCOMA
     Dosage: 1 GTT, QHS
     Route: 047
  3. COMBIGAN[R] [Concomitant]
     Indication: GLAUCOMA
     Dosage: 2 GTT, QHS
     Route: 047
  4. SYSTANE ULTRA [Concomitant]
     Indication: DRY EYE
     Route: 047

REACTIONS (3)
  - Incorrect storage of drug [Unknown]
  - Wrong technique in drug usage process [Unknown]
  - Lacrimation increased [Not Recovered/Not Resolved]
